FAERS Safety Report 8391246-9 (Version None)
Quarter: 2012Q2

REPORT INFORMATION
  Report Type: 
  Country: None (occurrence: None)
  Receive Date: 20120529
  Receipt Date: 20120517
  Transmission Date: 20120825
  Serious: Yes (Hospitalization, Disabling)
  Sender: FDA-Public Use
  Company Number: US-JNJFOC-20120515630

PATIENT
  Sex: Male
  Weight: 63.5 kg

DRUGS (1)
  1. LEVOFLOXACIN [Suspect]
     Indication: SINUSITIS
     Route: 048
     Dates: start: 20111001, end: 20111001

REACTIONS (18)
  - ABNORMAL LOSS OF WEIGHT [None]
  - NERVOUS SYSTEM DISORDER [None]
  - DEPRESSION [None]
  - HEADACHE [None]
  - PARAESTHESIA [None]
  - FATIGUE [None]
  - DECREASED APPETITE [None]
  - HYPERACUSIS [None]
  - ASTHENIA [None]
  - VISION BLURRED [None]
  - DECREASED IMMUNE RESPONSIVENESS [None]
  - CONDITION AGGRAVATED [None]
  - DISABILITY [None]
  - TINNITUS [None]
  - VISUAL IMPAIRMENT [None]
  - PAIN [None]
  - ANTI-THYROID ANTIBODY POSITIVE [None]
  - VERTIGO [None]
